FAERS Safety Report 9222415 (Version 1)
Quarter: 2013Q1

REPORT INFORMATION
  Report Type: Spontaneous
  Country: US (occurrence: US)
  Receive Date: 20120912
  Receipt Date: 20120912
  Transmission Date: 20140127
  Serious: No
  Sender: FDA-Public Use
  Company Number: 2012SP030290

PATIENT
  Age: 53 Year
  Sex: Male

DRUGS (7)
  1. VICTRELIS (200 MG) [Suspect]
     Indication: HEPATITIS C
     Route: 048
     Dates: start: 20120517, end: 20120604
  2. RIBAVIRIN [Suspect]
     Indication: HEPATITIS C
  3. TRAMADOL [Concomitant]
  4. DIAZEPAM [Concomitant]
  5. TIZANIDINE [Concomitant]
  6. PRILOSEC [Suspect]
  7. CLARITIN [Concomitant]

REACTIONS (1)
  - Platelet count decreased [None]
